FAERS Safety Report 8392378-1 (Version None)
Quarter: 2012Q2

REPORT INFORMATION
  Report Type: 
  Country: None (occurrence: None)
  Receive Date: 20120529
  Receipt Date: 20120522
  Transmission Date: 20120825
  Serious: Yes (Death, Hospitalization)
  Sender: FDA-Public Use
  Company Number: US-ACTELION-A-NJ2012-60868

PATIENT

DRUGS (3)
  1. TRACLEER [Suspect]
     Indication: PULMONARY ARTERIAL HYPERTENSION
     Dosage: UNK
     Route: 048
     Dates: start: 20111222, end: 20120519
  2. COUMADIN [Concomitant]
  3. OXYGEN [Concomitant]

REACTIONS (4)
  - CARDIAC DISORDER [None]
  - RENAL FAILURE [None]
  - HEART RATE INCREASED [None]
  - DEATH [None]
